FAERS Safety Report 6544820-6 (Version None)
Quarter: 2010Q1

REPORT INFORMATION
  Report Type: 
  Country: None (occurrence: None)
  Receive Date: 20100121
  Receipt Date: 20100112
  Transmission Date: 20100710
  Serious: Yes (Hospitalization, Other)
  Sender: FDA-Public Use
  Company Number: US-JNJFOC-20100105152

PATIENT
  Sex: Female
  Weight: 63.5 kg

DRUGS (4)
  1. DURAGESIC-100 [Suspect]
     Indication: BACK PAIN
     Route: 062
  2. DURAGESIC-100 [Suspect]
     Route: 062
  3. ESTRADIOL [Concomitant]
     Indication: HYSTERECTOMY
     Route: 048
  4. ROBAXIN [Concomitant]
     Indication: MUSCLE RELAXANT THERAPY
     Route: 048

REACTIONS (18)
  - ABDOMINAL PAIN UPPER [None]
  - ABNORMAL BEHAVIOUR [None]
  - ANTIBIOTIC RESISTANT STAPHYLOCOCCUS TEST [None]
  - BREAST CYST [None]
  - CARPAL TUNNEL SYNDROME [None]
  - COUGH [None]
  - CYST [None]
  - DERMAL CYST [None]
  - DRUG ADMINISTRATION ERROR [None]
  - DRUG DOSE OMISSION [None]
  - FEELING ABNORMAL [None]
  - GASTRIC ULCER [None]
  - HYPERTENSION [None]
  - PAIN IN EXTREMITY [None]
  - PRODUCT QUALITY ISSUE [None]
  - RECTAL PROLAPSE [None]
  - SPINAL DISORDER [None]
  - SPINAL FRACTURE [None]
